FAERS Safety Report 24541173 (Version 3)
Quarter: 2024Q4

REPORT INFORMATION
  Report Type: Report from Study
  Country: US (occurrence: US)
  Receive Date: 20241023
  Receipt Date: 20241231
  Transmission Date: 20250115
  Serious: Yes (Hospitalization)
  Sender: TAKEDA
  Company Number: US-TAKEDA-2024TUS105249

PATIENT
  Sex: Male

DRUGS (2)
  1. MARIBAVIR [Suspect]
     Active Substance: MARIBAVIR
     Indication: Cytomegalovirus infection
     Dosage: 400 MILLIGRAM, BID
     Dates: start: 20240926
  2. VALGANCICLOVIR [Suspect]
     Active Substance: VALGANCICLOVIR
     Indication: Product used for unknown indication
     Dosage: UNK

REACTIONS (7)
  - Dizziness [Unknown]
  - Tremor [Unknown]
  - Platelet count decreased [Unknown]
  - Incorrect dose administered [Recovered/Resolved]
  - White blood cell count abnormal [Unknown]
  - Fatigue [Unknown]
  - Dysgeusia [Unknown]
